FAERS Safety Report 22790846 (Version 2)
Quarter: 2023Q4

REPORT INFORMATION
  Report Type: Spontaneous
  Country: US (occurrence: US)
  Receive Date: 20230806
  Receipt Date: 20231104
  Transmission Date: 20240110
  Serious: No
  Sender: FDA-Public Use
  Company Number: US-GLENMARK PHARMACEUTICALS-2023GMK082320

PATIENT

DRUGS (2)
  1. RYALTRIS [Suspect]
     Active Substance: MOMETASONE FUROATE MONOHYDRATE\OLOPATADINE HYDROCHLORIDE
     Indication: Hypersensitivity
     Dosage: UNK, OD, 2 SPRAYS
     Route: 045
  2. RYALTRIS [Suspect]
     Active Substance: MOMETASONE FUROATE MONOHYDRATE\OLOPATADINE HYDROCHLORIDE
     Dosage: UNK, OD, (THEN BROUGHT IT DOWN TO ONE SPRAY)
     Route: 045

REACTIONS (5)
  - Gingival swelling [Unknown]
  - Burning sensation [Unknown]
  - Drug ineffective for unapproved indication [Unknown]
  - Nausea [Unknown]
  - Product taste abnormal [Unknown]
